FAERS Safety Report 6348481-0 (Version None)
Quarter: 2009Q3

REPORT INFORMATION
  Report Type: 
  Country: None (occurrence: None)
  Receive Date: 20090911
  Receipt Date: 20080320
  Transmission Date: 20100115
  Serious: Yes (Hospitalization, Other)
  Sender: FDA-Public Use
  Company Number: US-ASTRAZENECA-2007UW23295

PATIENT
  Age: 20642 Day
  Sex: Female
  Weight: 84.8 kg

DRUGS (20)
  1. SEROQUEL [Suspect]
     Indication: BIPOLAR DISORDER
     Route: 048
     Dates: start: 20030101, end: 20030301
  2. SEROQUEL [Suspect]
     Dosage: 25 MG TO 75 MG
     Route: 048
     Dates: start: 20040602
  3. SEROQUEL [Suspect]
     Route: 048
     Dates: start: 20060601
  4. ZYPREXA/SYMBYAX (OLANZAPINE) [Concomitant]
     Dates: start: 20000101
  5. SOMA [Concomitant]
     Dates: start: 19920928
  6. VICODIN/HYDRO/APAP [Concomitant]
     Indication: BACK PAIN
     Dosage: 1/2 TABLETS FOUR TIMES A DAY
     Dates: start: 19920928
  7. INDERAL [Concomitant]
     Indication: HEADACHE
     Dosage: FOUR TIMES A DAY
     Dates: start: 19920928
  8. XANAX [Concomitant]
     Indication: ANXIETY
     Dosage: 0.5 MG TO 4 MG
     Dates: start: 19920928
  9. TRAZODONE HCL [Concomitant]
     Dosage: 25 MG TO 50 MG
     Dates: start: 20000331
  10. PROZAC [Concomitant]
     Dosage: 20 MG TO 60 MG
     Dates: start: 20000331
  11. ULTRAM [Concomitant]
     Dates: start: 20000412
  12. ASPIRIN [Concomitant]
     Dates: start: 20040506
  13. ZETIA [Concomitant]
     Dates: start: 20040511
  14. ZOCOR [Concomitant]
     Dates: start: 20040511
  15. METOPROLOL TARTRATE [Concomitant]
     Dates: start: 20040511
  16. LOPERAMIDE [Concomitant]
     Dates: start: 20040520
  17. AVANDIA [Concomitant]
     Route: 048
     Dates: start: 20040524
  18. DILTIAZEM [Concomitant]
     Dosage: 240
     Dates: start: 20040602
  19. PHENERGAN [Concomitant]
     Dates: start: 20040603
  20. LOTREL [Concomitant]
     Dosage: 5/10 MG ONCE DAILY
     Route: 048
     Dates: start: 20051208

REACTIONS (19)
  - ANAEMIA [None]
  - ANGINA PECTORIS [None]
  - ARTERIOSCLEROSIS [None]
  - BLOOD CHOLESTEROL INCREASED [None]
  - BLOOD TRIGLYCERIDES INCREASED [None]
  - CHEST PAIN [None]
  - CORONARY ARTERY DISEASE [None]
  - DIABETES MELLITUS [None]
  - DIABETIC NEUROPATHY [None]
  - DIABETIC VASCULAR DISORDER [None]
  - HYPERLIPIDAEMIA [None]
  - MYOCARDIAL INFARCTION [None]
  - NEPHROGENIC ANAEMIA [None]
  - NEUROPATHY PERIPHERAL [None]
  - RENAL FAILURE [None]
  - RENAL FAILURE ACUTE [None]
  - RENAL FAILURE CHRONIC [None]
  - TREMOR [None]
  - TYPE 2 DIABETES MELLITUS [None]
